FAERS Safety Report 11482945 (Version 1)
Quarter: 2015Q3

REPORT INFORMATION
  Report Type: Spontaneous
  Country: US (occurrence: None)
  Receive Date: 20150908
  Receipt Date: 20150908
  Transmission Date: 20151125
  Serious: Yes (Other)
  Sender: FDA-Public Use
  Company Number: None

PATIENT
  Age: 59 Year
  Sex: Female
  Weight: 63.5 kg

DRUGS (16)
  1. CASPOFUNGIN [Concomitant]
     Active Substance: CASPOFUNGIN
  2. HIZENTRA [Concomitant]
     Active Substance: HUMAN IMMUNOGLOBULIN G
  3. AZITHROMYCIN [Concomitant]
     Active Substance: AZITHROMYCIN ANHYDROUS
  4. MULTIVITE [Concomitant]
     Active Substance: VITAMINS
  5. ZOSYN [Concomitant]
     Active Substance: PIPERACILLIN SODIUM\TAZOBACTAM SODIUM
  6. XOPENEX [Concomitant]
     Active Substance: LEVALBUTEROL HYDROCHLORIDE
  7. MOTRIN [Concomitant]
     Active Substance: IBUPROFEN
  8. ZYFLO [Concomitant]
     Active Substance: ZILEUTON
  9. ADVAIR HFA [Concomitant]
     Active Substance: FLUTICASONE PROPIONATE\SALMETEROL XINAFOATE
  10. PREVACID [Concomitant]
     Active Substance: LANSOPRAZOLE
  11. GLUCOSAMINE WITH CHONDROITIN [Concomitant]
  12. TYLENOL [Concomitant]
     Active Substance: ACETAMINOPHEN
  13. CRANBERRY EXTRACT [Concomitant]
     Active Substance: CRANBERRY JUICE
  14. ZOSYN [Suspect]
     Active Substance: PIPERACILLIN SODIUM\TAZOBACTAM SODIUM
     Indication: ACUTE SINUSITIS
     Dosage: INTO A VEIN
     Dates: start: 20150808, end: 20150904
  15. HYPERTONIC SALINE [Concomitant]
  16. BACLOFEN. [Concomitant]
     Active Substance: BACLOFEN

REACTIONS (7)
  - Alanine aminotransferase increased [None]
  - Device occlusion [None]
  - Product contamination physical [None]
  - Drug dose omission [None]
  - Underdose [None]
  - Chest discomfort [None]
  - Aspartate aminotransferase increased [None]

NARRATIVE: CASE EVENT DATE: 20150822
